FAERS Safety Report 25111455 (Version 4)
Quarter: 2025Q4

REPORT INFORMATION
  Report Type: Report from Study
  Country: EU (occurrence: EU)
  Receive Date: 20250324
  Receipt Date: 20251103
  Transmission Date: 20260118
  Serious: Yes (Hospitalization, Other)
  Sender: TAKEDA
  Company Number: EU-TAKEDA-2023TUS118601

PATIENT
  Sex: Female

DRUGS (12)
  1. TEDUGLUTIDE [Suspect]
     Active Substance: TEDUGLUTIDE
     Indication: Short-bowel syndrome
     Dosage: 1.4 MILLIGRAM, QD
     Dates: start: 20180209, end: 20200602
  2. TEDUGLUTIDE [Suspect]
     Active Substance: TEDUGLUTIDE
     Dosage: 1.8 MILLIGRAM, QD
     Dates: start: 20200603
  3. TEDUGLUTIDE [Suspect]
     Active Substance: TEDUGLUTIDE
  4. TEDUGLUTIDE [Suspect]
     Active Substance: TEDUGLUTIDE
  5. Stimulance [Concomitant]
     Indication: Prophylaxis
     Dosage: 12 GRAM, QD
     Dates: start: 20230303
  6. OMACOR [Concomitant]
     Active Substance: OMEGA-3-ACID ETHYL ESTERS
     Indication: Anastomotic ulcer
     Dosage: UNK UNK, BID
     Dates: start: 20180315
  7. METRONIDAZOLE [Concomitant]
     Active Substance: METRONIDAZOLE
     Indication: Overgrowth bacterial
     Dosage: 60 MILLIGRAM, TID
     Dates: start: 20091125
  8. GENTAMICIN [Concomitant]
     Active Substance: GENTAMICIN
     Indication: Overgrowth bacterial
     Dosage: 20 MILLIGRAM, BID
     Dates: start: 20091125
  9. ESOMEPRAZOLE [Concomitant]
     Active Substance: ESOMEPRAZOLE
     Indication: Hyperchlorhydria
     Dosage: 10 MILLIGRAM, BID
     Dates: start: 20180208
  10. HYDROXOCOBALAMIN [Concomitant]
     Active Substance: HYDROXOCOBALAMIN
     Indication: Vitamin B12 deficiency
     Dosage: 1 MILLIGRAM, Q3MONTHS
     Dates: start: 20110603
  11. SOMATROPIN [Concomitant]
     Active Substance: SOMATROPIN
     Indication: Growth hormone deficiency
     Dosage: 7 MILLIGRAM, QD
     Dates: start: 20160501
  12. Amoksicillin [Concomitant]
     Indication: Overgrowth bacterial
     Dosage: 60 MILLIGRAM, QD
     Dates: start: 20091203

REACTIONS (2)
  - Small intestinal obstruction [Recovered/Resolved]
  - Abdominal pain [Not Recovered/Not Resolved]

NARRATIVE: CASE EVENT DATE: 20230101
